FAERS Safety Report 9120229 (Version 1)
Quarter: 2013Q1

REPORT INFORMATION
  Report Type: Spontaneous
  Country: US (occurrence: US)
  Receive Date: 20130226
  Receipt Date: 20130226
  Transmission Date: 20140127
  Serious: Yes (Other)
  Sender: FDA-Public Use
  Company Number: US-JNJFOC-20130209948

PATIENT
  Sex: Female
  Weight: 77.11 kg

DRUGS (5)
  1. DURAGESIC [Suspect]
     Indication: PAIN
     Route: 062
  2. DURAGESIC [Suspect]
     Indication: PAIN
     Route: 062
  3. DURAGESIC [Suspect]
     Indication: PAIN
     Route: 062
     Dates: start: 2001
  4. FENTANYL [Suspect]
     Indication: PAIN
     Route: 062
  5. COREG [Concomitant]
     Indication: PRODUCT USED FOR UNKNOWN INDICATION
     Route: 065

REACTIONS (18)
  - Depression [Unknown]
  - Expressive language disorder [Unknown]
  - Feeling abnormal [Unknown]
  - Body height decreased [Unknown]
  - Blood cholesterol increased [Unknown]
  - Insomnia [Unknown]
  - Alopecia [Unknown]
  - Drug ineffective [Unknown]
  - Product quality issue [Unknown]
  - Nervousness [Unknown]
  - Somnolence [Unknown]
  - Dry skin [Unknown]
  - Nasal congestion [Unknown]
  - Pain [Unknown]
  - Weight increased [Unknown]
  - Drug dose omission [Unknown]
  - Product adhesion issue [None]
  - Aphasia [None]
